FAERS Safety Report 6960896-6 (Version None)
Quarter: 2010Q3

REPORT INFORMATION
  Report Type: 
  Country: None (occurrence: None)
  Receive Date: 20100901
  Receipt Date: 20100820
  Transmission Date: 20110219
  Serious: Yes (Disabling, Other)
  Sender: FDA-Public Use
  Company Number: US-PFIZER INC-2010105378

PATIENT
  Age: 75 Year
  Sex: Female
  Weight: 56.7 kg

DRUGS (5)
  1. LYRICA [Suspect]
     Indication: NEUROPATHY PERIPHERAL
     Dosage: 50 MG, DAILY
     Route: 048
     Dates: start: 20100601, end: 20100101
  2. LYRICA [Suspect]
     Dosage: 100 MG, DAILY
     Route: 048
  3. GABAPENTIN [Concomitant]
     Dosage: UNK
  4. CORTISONE [Concomitant]
     Indication: BLISTER
     Dosage: UNK
  5. ALENDRONATE SODIUM [Concomitant]
     Indication: OSTEOARTHRITIS
     Dosage: UNK
     Route: 048

REACTIONS (8)
  - ANXIETY [None]
  - DEPRESSED MOOD [None]
  - HYPOAESTHESIA [None]
  - IRRITABILITY [None]
  - MOBILITY DECREASED [None]
  - SOMNOLENCE [None]
  - SUICIDAL IDEATION [None]
  - VISION BLURRED [None]
